FAERS Safety Report 7456443-5 (Version None)
Quarter: 2011Q2

REPORT INFORMATION
  Report Type: 
  Country: None (occurrence: None)
  Receive Date: 20110503
  Receipt Date: 20110429
  Transmission Date: 20111010
  Serious: Yes (Hospitalization)
  Sender: FDA-Public Use
  Company Number: MY-JNJFOC-20110500429

PATIENT
  Sex: Female
  Weight: 51.5 kg

DRUGS (7)
  1. LORAZEPAM [Concomitant]
     Route: 048
  2. LORAZEPAM [Concomitant]
     Indication: SCHIZOPHRENIA
     Route: 048
  3. AMOXICILLIN [Concomitant]
     Indication: UPPER RESPIRATORY TRACT INFECTION
  4. PALIPERIDONE PALMITATE [Suspect]
     Indication: SCHIZOPHRENIA
     Route: 030
  5. PALIPERIDONE PALMITATE [Suspect]
     Route: 030
  6. LORAZEPAM [Concomitant]
     Route: 048
  7. BENADRYL [Concomitant]
     Indication: UPPER RESPIRATORY TRACT INFECTION

REACTIONS (1)
  - PSYCHOTIC DISORDER [None]
